FAERS Safety Report 12355892 (Version 3)
Quarter: 2020Q1

REPORT INFORMATION
  Report Type: Spontaneous
  Country: US (occurrence: US)
  Receive Date: 20160511
  Receipt Date: 20200130
  Transmission Date: 20200409
  Serious: Yes (Hospitalization)
  Sender: FDA-Public Use
  Company Number: US-B.I. PHARMACEUTICALS,INC./RIDGEFIELD-2016-BI-29373BI

PATIENT
  Age: 59 Year
  Sex: Male
  Weight: 90.71 kg

DRUGS (21)
  1. ATORVASTATIN CALCIUM. [Concomitant]
     Active Substance: ATORVASTATIN CALCIUM
     Indication: BLOOD CHOLESTEROL ABNORMAL
     Dosage: TAKE ONE-HALF TABLET ORALLY EVERY EVENING, PO QPM
     Route: 048
     Dates: start: 20130207, end: 20171223
  2. LASIX [Concomitant]
     Active Substance: FUROSEMIDE
     Dosage: AT PCP APPOINTMENT, HAVE BLOOD PRESSURE CHECKED TO SEE IF IT NEEDS TO BE INCREASED BACK TO 40 MG BID
     Route: 065
  3. AZITHROMYCIN ANHYDROUS. [Concomitant]
     Active Substance: AZITHROMYCIN ANHYDROUS
     Indication: PRODUCT USED FOR UNKNOWN INDICATION
     Dosage: TAKE ONE TABLET ORALLY EVERY DAY FOR ONE MORE DAY
     Route: 048
     Dates: start: 20140719
  4. SPIRONOLACTONE. [Concomitant]
     Active Substance: SPIRONOLACTONE
     Indication: PRODUCT USED FOR UNKNOWN INDICATION
     Dosage: TAKE ONE TABLET ORALLY EVERY DAY WITH BREAKFAST
     Route: 048
  5. PRADAXA [Suspect]
     Active Substance: DABIGATRAN ETEXILATE MESYLATE
     Indication: ATRIAL FIBRILLATION
     Dosage: TAKE ONE CAPSULE ORALLY TWICE A DAY KEEP IN ORIGINAL CONTAINER
     Route: 048
     Dates: start: 20130801, end: 20140611
  6. OMEPRAZOLE. [Concomitant]
     Active Substance: OMEPRAZOLE
     Indication: DRUG THERAPY
     Dosage: EC?TAKE TWO CAPSULES ORALLY TWICE A DAY FOR STOMACH (ON AN EMPTY STOMACH BEFORE MEAL)
     Route: 048
     Dates: start: 20140611, end: 20171223
  7. PANTOPRAZOLE [Concomitant]
     Active Substance: PANTOPRAZOLE
     Indication: PRODUCT USED FOR UNKNOWN INDICATION
     Dosage: INJECTION, POWDER?IN QS 0.9% NACL 200ML 20 ML/HR IV
     Route: 042
  8. MULTIVITAMINS [ASCORBIC ACID;ERGOCALCIFEROL;FOLIC ACID;NICOTINAMIDE [Concomitant]
     Indication: PRODUCT USED FOR UNKNOWN INDICATION
     Route: 048
  9. VITAMIN D3 [Concomitant]
     Active Substance: CHOLECALCIFEROL
     Indication: PRODUCT USED FOR UNKNOWN INDICATION
     Dosage: TAKE 2 TABLETS ORALLY EVERY DAY, PO QPM
     Route: 048
  10. ALBUTEROL [SALBUTAMOL SULFATE] [Concomitant]
     Active Substance: ALBUTEROL SULFATE
     Indication: DYSPNOEA
     Dosage: 2.5 MG NEB Q6H PRN
     Route: 055
     Dates: start: 20121206, end: 20171223
  11. CARVEDILOL. [Concomitant]
     Active Substance: CARVEDILOL
     Indication: DRUG THERAPY
     Dosage: TAKE ONE TABLET ORALLY TWICE A DAY WITH MEALS?HOLD FOR SYSTOLIC BLOOD PRESSURE (SBP) {100 OR HR {60
     Route: 048
     Dates: start: 20130207, end: 20171223
  12. BENZOCAINE/MENTHOL [Concomitant]
     Indication: OROPHARYNGEAL PAIN
     Dosage: DISSOLVE 1 LOZENGE ORALLY EVERY 2 HOURS AS NEEDED FOR SORE THROAT
     Route: 048
  13. SPIRIVA [Concomitant]
     Active Substance: TIOTROPIUM BROMIDE MONOHYDRATE
     Indication: PRODUCT USED FOR UNKNOWN INDICATION
     Route: 065
     Dates: start: 20121206, end: 20171223
  14. ALBUTEROL [SALBUTAMOL SULFATE] [Concomitant]
     Active Substance: ALBUTEROL SULFATE
     Dosage: 0.5% INHL SOLN, INHALE 0.5ML (MIX W 2.5ML NACL OR AS INSTRUCTED),EVERY 2HRS AS NEEDED FOR BREATHING
     Route: 055
  15. TRAZODONE [Concomitant]
     Active Substance: TRAZODONE HYDROCHLORIDE
     Indication: INSOMNIA
     Route: 048
  16. BUDESONIDE;FORMOTEROL [Concomitant]
     Active Substance: BUDESONIDE\FORMOTEROL
     Indication: PRODUCT USED FOR UNKNOWN INDICATION
     Dosage: 80/4.5MCG?USE 2 PUFFS AS ORAL INHALATION TWICE A DAY RINSE MOUTH AFTER USE
     Route: 055
  17. LANOXIN [Concomitant]
     Active Substance: DIGOXIN
     Indication: PRODUCT USED FOR UNKNOWN INDICATION
     Dosage: TAKE ONE TABLET ORALLY EVERY MORNING
     Route: 048
     Dates: start: 20130210, end: 20171223
  18. LISINOPRIL. [Concomitant]
     Active Substance: LISINOPRIL
     Indication: HYPERTENSION
     Dosage: TAKE ONE TABLET ORALLY EVERY DAY FOR HIGH BLOOD PRESSURE
     Route: 048
     Dates: start: 20041213, end: 20171223
  19. PREDNISONE. [Concomitant]
     Active Substance: PREDNISONE
     Indication: PRODUCT USED FOR UNKNOWN INDICATION
     Dosage: TAKE TWO TABLES ORALLY EVERY DAY WITH BREAKFAST
     Route: 048
  20. LASIX [Concomitant]
     Active Substance: FUROSEMIDE
     Indication: PRODUCT USED FOR UNKNOWN INDICATION
     Dosage: ONE TABLET ORALLY TWICE A DAY
     Route: 065
     Dates: start: 20121206, end: 20170803
  21. ASPIRIN (E.C.) [Concomitant]
     Active Substance: ASPIRIN
     Indication: PRODUCT USED FOR UNKNOWN INDICATION
     Route: 065
     Dates: start: 20130212, end: 20171223

REACTIONS (1)
  - Gastrointestinal haemorrhage [Recovered/Resolved]

NARRATIVE: CASE EVENT DATE: 20140611
